FAERS Safety Report 13638263 (Version 5)
Quarter: 2018Q2

REPORT INFORMATION
  Report Type: Spontaneous
  Country: US (occurrence: US)
  Receive Date: 20170609
  Receipt Date: 20180411
  Transmission Date: 20180711
  Serious: Yes (Hospitalization, Other)
  Sender: FDA-Public Use
  Company Number: US-PFIZER INC-2017250216

PATIENT
  Age: 63 Year
  Sex: Female
  Weight: 99.79 kg

DRUGS (14)
  1. ALPRAZOLAM. [Concomitant]
     Active Substance: ALPRAZOLAM
     Indication: ANXIETY
     Dosage: 1 MG, AS NEEDED [2X/DAY]
     Route: 048
     Dates: start: 201012
  2. LISINOPRIL. [Concomitant]
     Active Substance: LISINOPRIL
     Indication: ISCHAEMIC HEART DISEASE PROPHYLAXIS
  3. XELJANZ XR [Suspect]
     Active Substance: TOFACITINIB CITRATE
     Indication: RHEUMATOID ARTHRITIS
     Dosage: 11 MG, 1X/DAY (EVERY MORNING)
     Route: 048
     Dates: start: 201705
  4. LISINOPRIL. [Concomitant]
     Active Substance: LISINOPRIL
     Indication: CEREBROVASCULAR ACCIDENT PROPHYLAXIS
  5. ATORVASTATIN [Concomitant]
     Active Substance: ATORVASTATIN
     Dosage: 20 MG, UNK
  6. PROPRANOLOL [Concomitant]
     Active Substance: PROPRANOLOL HYDROCHLORIDE
     Indication: PAIN
  7. PANTOPRAZOLE [Concomitant]
     Active Substance: PANTOPRAZOLE
     Dosage: 40 MG, UNK
  8. XELJANZ XR [Suspect]
     Active Substance: TOFACITINIB CITRATE
     Dosage: 11 MG, 2X/DAY, (2 PILLS A DAY)
     Dates: start: 201707
  9. HYDROCODONE BITARTRATE AND ACETAMINOPHEN [Concomitant]
     Active Substance: ACETAMINOPHEN\HYDROCODONE BITARTRATE
     Indication: FIBROMYALGIA
     Dosage: 325 MG, AS NEEDED[2X/DAY]
     Route: 048
  10. PROPRANOLOL [Concomitant]
     Active Substance: PROPRANOLOL HYDROCHLORIDE
     Indication: FIBROMYALGIA
     Dosage: UNK
  11. LISINOPRIL. [Concomitant]
     Active Substance: LISINOPRIL
     Indication: BLOOD PRESSURE MANAGEMENT
     Dosage: 10 MG, 1X/DAY
     Route: 048
     Dates: start: 201512
  12. DULOXETINE. [Concomitant]
     Active Substance: DULOXETINE
     Indication: RHEUMATOID ARTHRITIS
     Dosage: 60 MG, 2X/DAY
     Route: 048
     Dates: start: 201612
  13. DULOXETINE. [Concomitant]
     Active Substance: DULOXETINE
     Indication: DEPRESSION
  14. HYDROCODONE BITARTRATE AND ACETAMINOPHEN [Concomitant]
     Active Substance: ACETAMINOPHEN\HYDROCODONE BITARTRATE
     Indication: RHEUMATOID ARTHRITIS

REACTIONS (4)
  - Product use issue [Unknown]
  - Cataract [Recovered/Resolved]
  - Drug effect incomplete [Recovering/Resolving]
  - Pneumonia [Unknown]

NARRATIVE: CASE EVENT DATE: 201706
